FAERS Safety Report 10164225 (Version 1)
Quarter: 2014Q2

REPORT INFORMATION
  Report Type: Spontaneous
  Country: US (occurrence: US)
  Receive Date: 20140510
  Receipt Date: 20140510
  Transmission Date: 20141212
  Serious: No
  Sender: FDA-Public Use
  Company Number: US-BRISTOL-MYERS SQUIBB COMPANY-20006979

PATIENT
  Age: 78 Year
  Sex: Female
  Weight: 88.43 kg

DRUGS (3)
  1. BYETTA [Suspect]
     Indication: TYPE 2 DIABETES MELLITUS
     Dosage: EXPIRATION DATE: JUN2015
     Route: 058
  2. METFORMIN HCL [Suspect]
  3. GLYBURIDE [Suspect]

REACTIONS (4)
  - Nausea [Unknown]
  - Back pain [Unknown]
  - Blood glucose decreased [Unknown]
  - Glycosylated haemoglobin increased [Unknown]
